FAERS Safety Report 4365657-2 (Version None)
Quarter: 2004Q2

REPORT INFORMATION
  Report Type: 
  Country: None (occurrence: None)
  Receive Date: 20040527
  Receipt Date: 20021126
  Transmission Date: 20050107
  Serious: Yes (Other)
  Sender: FDA-Public Use
  Company Number: PHEH2002US10136

PATIENT
  Age: 30 Year
  Sex: Female

DRUGS (7)
  1. DIOVAN [Suspect]
     Dosage: 160 MG/UNK
     Route: 048
  2. XANAX [Suspect]
  3. PRENATAL VITAMINS [Concomitant]
  4. DIDREX [Suspect]
  5. ADIPEX-P [Suspect]
  6. HYDRALAZINE HCL [Suspect]
  7. ZOLOFT [Suspect]

REACTIONS (8)
  - BLOOD PRESSURE INCREASED [None]
  - CHORIOAMNIONITIS [None]
  - DRUG EXPOSURE DURING PREGNANCY [None]
  - HAEMATOCRIT DECREASED [None]
  - HAEMOGLOBIN DECREASED [None]
  - OLIGOHYDRAMNIOS [None]
  - PLACENTAL DISORDER [None]
  - RED BLOOD CELL COUNT DECREASED [None]
